APPROVED DRUG PRODUCT: PYRIDOSTIGMINE BROMIDE
Active Ingredient: PYRIDOSTIGMINE BROMIDE
Strength: 60MG
Dosage Form/Route: TABLET;ORAL
Application: A040457 | Product #001
Applicant: IMPAX LABORATORIES INC
Approved: Dec 26, 2002 | RLD: No | RS: No | Type: DISCN